FAERS Safety Report 20904887 (Version 1)
Quarter: 2022Q2

REPORT INFORMATION
  Report Type: Spontaneous
  Country: US (occurrence: US)
  Receive Date: 20220602
  Receipt Date: 20220602
  Transmission Date: 20220720
  Serious: No
  Sender: FDA-Public Use
  Company Number: US-GLENMARK PHARMACEUTICALS-2022GMK071668

PATIENT

DRUGS (1)
  1. MUPIROCIN [Suspect]
     Active Substance: MUPIROCIN
     Indication: Oral herpes
     Dosage: UNK
     Route: 061

REACTIONS (3)
  - Oral pain [Unknown]
  - Product use in unapproved indication [Unknown]
  - Accidental exposure to product [Unknown]
